FAERS Safety Report 8856558 (Version 3)
Quarter: 2013Q1

REPORT INFORMATION
  Report Type: Spontaneous
  Country: JP (occurrence: None)
  Receive Date: 20121019
  Receipt Date: 20130222
  Transmission Date: 20140127
  Serious: Yes (Other)
  Sender: FDA-Public Use
  Company Number: ADR-2012-01897

PATIENT
  Sex: Female

DRUGS (2)
  1. GABALON INTRATHECAL (BACLOFEN INJECTION) [Suspect]
     Indication: CEREBRAL PALSY
  2. MEROPEN [Concomitant]

REACTIONS (4)
  - Shunt infection [None]
  - CSF culture positive [None]
  - Bacterial test positive [None]
  - Hydrocephalus [None]
